FAERS Safety Report 8933269 (Version 2)
Quarter: 2014Q1

REPORT INFORMATION
  Report Type: Report from Study
  Country: KR (occurrence: KR)
  Receive Date: 20121129
  Receipt Date: 20140203
  Transmission Date: 20141002
  Serious: Yes (Hospitalization, Other)
  Sender: FDA-Public Use
  Company Number: PHHO2012KR016659

PATIENT
  Sex: 0

DRUGS (17)
  1. NEORAL [Suspect]
     Indication: RENAL TRANSPLANT
     Dosage: 100 MG, BID
     Route: 048
     Dates: start: 20120707, end: 20121105
  2. RAD001 [Suspect]
     Indication: RENAL TRANSPLANT
     Dosage: 1.5 MG, BID
     Route: 048
     Dates: start: 20120713
  3. RAD001 [Suspect]
     Dosage: 1.75 MG, QD
     Route: 048
     Dates: start: 20120723, end: 20120723
  4. RAD001 [Suspect]
     Dosage: 2.0 MG, QD
     Route: 048
     Dates: start: 20120726
  5. RAD001 [Suspect]
     Dosage: 2.25 MG, QD
     Route: 048
     Dates: start: 20120727, end: 20120731
  6. RAD001 [Suspect]
     Dosage: 2.5 MG, QD
     Route: 048
     Dates: start: 20120801, end: 20120926
  7. RAD001 [Suspect]
     Dosage: 2.75 MG, QD
     Route: 048
     Dates: start: 20120927, end: 20121003
  8. RAD001 [Suspect]
     Dosage: 3.0 MG, QD
     Route: 048
     Dates: start: 20121004
  9. SYNTHROID [Concomitant]
     Indication: HYPOTHYROIDISM
     Dosage: 100 MG, QD
     Route: 048
     Dates: start: 201107
  10. VYTORIN [Concomitant]
     Indication: HYPERCHOLESTEROLAEMIA
     Dosage: 100 UG, QD
     Route: 048
     Dates: start: 20120806
  11. TRIDOL [Concomitant]
     Indication: PAIN IN EXTREMITY
     Dosage: 150 MG, TID
     Route: 048
     Dates: start: 20120718
  12. ULCERMIN [Concomitant]
     Indication: DYSPEPSIA
     Dosage: 15 ML, QD
     Route: 048
     Dates: start: 20121031
  13. METHYLONE [Concomitant]
     Indication: TRANSPLANT
     Dosage: 6 MG, QD
     Route: 048
     Dates: start: 20120712
  14. SEPTRIN [Concomitant]
     Indication: PROPHYLAXIS
     Dosage: 1 DF, QD
     Route: 048
     Dates: start: 20120712
  15. LANTUS [Concomitant]
     Indication: DIABETES MELLITUS
     Dosage: PRN QD
     Route: 058
     Dates: start: 20120717
  16. APIDRA [Concomitant]
     Indication: DIABETES MELLITUS
     Dosage: PRN QD
     Route: 058
     Dates: start: 20120715
  17. ISOKET [Concomitant]
     Indication: AUTONOMIC NERVOUS SYSTEM IMBALANCE
     Dosage: 120 MG, QD
     Route: 048
     Dates: start: 20120727

REACTIONS (1)
  - Gastritis [Recovered/Resolved]
